FAERS Safety Report 9168865 (Version 1)
Quarter: 2013Q1

REPORT INFORMATION
  Report Type: Spontaneous
  Country: None (occurrence: None)
  Receive Date: 20130314
  Receipt Date: 20130314
  Transmission Date: 20140127
  Serious: No
  Sender: FDA-Public Use
  Company Number: None

PATIENT
  Age: 30 Year
  Sex: Male
  Weight: 102.06 kg

DRUGS (1)
  1. SODIUM CHLORIDE INJECTION [Suspect]
     Indication: DEHYDRATION
     Dosage: BOLUS IV
     Route: 040
     Dates: start: 20130228

REACTIONS (1)
  - Pain in extremity [None]
